FAERS Safety Report 5107547-3 (Version None)
Quarter: 2006Q3

REPORT INFORMATION
  Report Type: 
  Country: None (occurrence: None)
  Receive Date: 20060913
  Receipt Date: 20060913
  Transmission Date: 20061208
  Serious: Yes (Other)
  Sender: FDA-Public Use
  Company Number: None

PATIENT
  Age: 60 Year
  Sex: Female

DRUGS (12)
  1. REVLIMID [Suspect]
     Indication: MULTIPLE MYELOMA
     Dosage: 20 MG TO 5 MG QD PO
     Route: 048
     Dates: start: 20060901, end: 20060910
  2. REVLIMID [Suspect]
  3. CASPOFUNGIN [Concomitant]
  4. FLUCONAZOLE [Concomitant]
  5. MEROPENEM [Concomitant]
  6. DECADRON [Concomitant]
  7. NEUPOGEN [Concomitant]
  8. EPOGEN [Concomitant]
  9. COLACE [Concomitant]
  10. DARVOCET-N 100 [Concomitant]
  11. TYLENOL [Concomitant]
  12. DULCOLAX [Concomitant]

REACTIONS (1)
  - PANCYTOPENIA [None]
